FAERS Safety Report 16912068 (Version 1)
Quarter: 2019Q4

REPORT INFORMATION
  Report Type: Spontaneous
  Country: SE (occurrence: SE)
  Receive Date: 20191014
  Receipt Date: 20191014
  Transmission Date: 20200122
  Serious: Yes (Death, Hospitalization)
  Sender: FDA-Public Use
  Company Number: SE-009507513-1910SWE007030

PATIENT
  Age: 9 Decade
  Sex: Male

DRUGS (1)
  1. KEYTRUDA [Suspect]
     Active Substance: PEMBROLIZUMAB
     Indication: LUNG NEOPLASM MALIGNANT
     Dosage: UNK
     Route: 065

REACTIONS (5)
  - Death [Fatal]
  - Dysphagia [Unknown]
  - Secretion discharge [Unknown]
  - Oedema peripheral [Unknown]
  - Gastritis fungal [Unknown]

NARRATIVE: CASE EVENT DATE: 20190908
